FAERS Safety Report 9861210 (Version 1)
Quarter: 2014Q1

REPORT INFORMATION
  Report Type: Spontaneous
  Country: US (occurrence: US)
  Receive Date: 20140202
  Receipt Date: 20140202
  Transmission Date: 20141002
  Serious: No
  Sender: FDA-Public Use
  Company Number: US-ALLERGAN-1304205US

PATIENT
  Sex: Female

DRUGS (1)
  1. BOTOX COSMETIC [Suspect]
     Indication: SKIN WRINKLING
     Dosage: UNK
     Route: 030
     Dates: start: 20130314, end: 20130314

REACTIONS (3)
  - Cutis laxa [Not Recovered/Not Resolved]
  - Head discomfort [Not Recovered/Not Resolved]
  - Eyelid ptosis [Not Recovered/Not Resolved]
